FAERS Safety Report 18332759 (Version 1)
Quarter: 2020Q4

REPORT INFORMATION
  Report Type: Spontaneous
  Country: AR (occurrence: AR)
  Receive Date: 20201001
  Receipt Date: 20201001
  Transmission Date: 20210113
  Serious: Yes (Death, Other)
  Sender: FDA-Public Use
  Company Number: AR-UNITED THERAPEUTICS-UNT-2020-014767

PATIENT
  Sex: Male

DRUGS (1)
  1. REMODULIN [Suspect]
     Active Substance: TREPROSTINIL
     Indication: PULMONARY HYPERTENSION
     Dosage: UNK, CONTINUING
     Route: 058
     Dates: start: 20191029, end: 20200912

REACTIONS (3)
  - Disease progression [Fatal]
  - Cardiac failure congestive [Fatal]
  - Cardio-respiratory arrest [Fatal]
